FAERS Safety Report 13300985 (Version 1)
Quarter: 2017Q1

REPORT INFORMATION
  Report Type: Not Available
  Country: IN (occurrence: IN)
  Receive Date: 20170307
  Receipt Date: 20170307
  Transmission Date: 20170428
  Serious: Yes (Other)
  Sender: FDA-Public Use
  Company Number: IN--2017-IN-000024

PATIENT
  Age: 35 Year
  Sex: Female

DRUGS (2)
  1. AMLODIPINE BESYLATE BRAND UNSPECIFIED (VIVIMED) [Suspect]
     Active Substance: AMLODIPINE BESYLATE
     Indication: SUICIDE ATTEMPT
     Dosage: 100 TABLETS OF 10 MG
  2. ATENOLOL. [Suspect]
     Active Substance: ATENOLOL
     Indication: SUICIDE ATTEMPT
     Dosage: 100 TABLETS OF 50 MG

REACTIONS (7)
  - Tachypnoea [Unknown]
  - Prolonged expiration [Unknown]
  - Atrioventricular block second degree [Unknown]
  - Overdose [Recovered/Resolved]
  - Intentional overdose [None]
  - Tachycardia [Unknown]
  - Acute kidney injury [Recovered/Resolved]
